FAERS Safety Report 8883261 (Version 1)
Quarter: 2012Q4

REPORT INFORMATION
  Report Type: Report from Study
  Country: US (occurrence: US)
  Receive Date: 20121102
  Receipt Date: 20121102
  Transmission Date: 20130627
  Serious: Yes (Hospitalization)
  Sender: FDA-Public Use
  Company Number: US-CELGENEUS-163-50794-12103313

PATIENT
  Age: 76 Year
  Sex: Male
  Weight: 86.81 kg

DRUGS (3)
  1. VIDAZA [Suspect]
     Indication: ACUTE MYELOID LEUKEMIA
     Dosage: 75 milligram/sq. meter
     Route: 058
     Dates: start: 20110831, end: 20120904
  2. GEMTUZUMAB OZOGAMICIN [Suspect]
     Indication: ACUTE MYELOID LEUKEMIA
     Dosage: 3 milligram/sq. meter
     Route: 041
     Dates: start: 20110831
  3. ZOLINZA [Suspect]
     Indication: ACUTE MYELOID LEUKEMIA
     Dosage: 400 Milligram
     Route: 048
     Dates: start: 20110831, end: 20120904

REACTIONS (1)
  - Myocardial infarction [Recovering/Resolving]
